FAERS Safety Report 15018228 (Version 1)
Quarter: 2018Q2

REPORT INFORMATION
  Report Type: Spontaneous
  Country: JP (occurrence: JP)
  Receive Date: 20180615
  Receipt Date: 20180615
  Transmission Date: 20180711
  Serious: Yes (Other)
  Sender: FDA-Public Use
  Company Number: JP-BAYER-2018-109569

PATIENT
  Age: 68 Year
  Sex: Male

DRUGS (2)
  1. DENOSUMAB [Concomitant]
     Active Substance: DENOSUMAB
  2. XOFIGO [Suspect]
     Active Substance: RADIUM RA-223 DICHLORIDE
     Indication: PROSTATE CANCER
     Dosage: UNK
     Route: 042
     Dates: start: 20170712, end: 20171129

REACTIONS (3)
  - Metastases to bone [None]
  - Prostatic specific antigen increased [Recovered/Resolved]
  - Prostate cancer metastatic [None]

NARRATIVE: CASE EVENT DATE: 201709
